FAERS Safety Report 6478732-3 (Version None)
Quarter: 2009Q4

REPORT INFORMATION
  Report Type: 
  Country: None (occurrence: None)
  Receive Date: 20091207
  Receipt Date: 20090204
  Transmission Date: 20100525
  Serious: No
  Sender: FDA-Public Use
  Company Number: US-AMGEN-KDL332063

PATIENT
  Age: 45 Year
  Sex: Female

DRUGS (3)
  1. ENBREL [Suspect]
     Indication: RHEUMATOID ARTHRITIS
  2. AMOXICILLIN [Concomitant]
  3. METHOTREXATE [Concomitant]

REACTIONS (1)
  - CLOSTRIDIUM DIFFICILE COLITIS [None]
